FAERS Safety Report 18438212 (Version 1)
Quarter: 2020Q4

REPORT INFORMATION
  Report Type: Report from Study
  Country: ES (occurrence: ES)
  Receive Date: 20201028
  Receipt Date: 20201028
  Transmission Date: 20210114
  Serious: Yes (Other)
  Sender: FDA-Public Use
  Company Number: ES-TEVA-2020-ES-1224055

PATIENT
  Sex: Female

DRUGS (1)
  1. COPAXONE [Suspect]
     Active Substance: GLATIRAMER ACETATE
     Indication: RELAPSING-REMITTING MULTIPLE SCLEROSIS
     Route: 058
     Dates: start: 20170615, end: 202010

REACTIONS (6)
  - Drug ineffective [Unknown]
  - Visual impairment [Unknown]
  - Catheter placement [Unknown]
  - Condition aggravated [Unknown]
  - Disease progression [Unknown]
  - Clumsiness [Unknown]
